FAERS Safety Report 9216613 (Version 1)
Quarter: 2013Q2

REPORT INFORMATION
  Report Type: Spontaneous
  Country: FR (occurrence: FR)
  Receive Date: 20130408
  Receipt Date: 20130408
  Transmission Date: 20140414
  Serious: Yes (Hospitalization)
  Sender: FDA-Public Use
  Company Number: FR-SANOFI-AVENTIS-2013SA035358

PATIENT
  Age: 79 Year
  Sex: Female

DRUGS (7)
  1. PLAQUENIL [Suspect]
     Indication: SCLERODERMA
     Route: 048
     Dates: start: 20130131, end: 20130210
  2. TAHOR [Concomitant]
     Route: 048
  3. INEXIUM [Concomitant]
     Route: 048
  4. LEVOTHYROX [Concomitant]
     Indication: HYPOTHYROIDISM
     Route: 048
  5. TEMESTA [Concomitant]
     Route: 048
  6. APROVEL [Concomitant]
     Route: 048
  7. PREDNISONE [Concomitant]
     Route: 048

REACTIONS (1)
  - Epilepsy [Recovered/Resolved]
